FAERS Safety Report 9133009 (Version 1)
Quarter: 2013Q1

REPORT INFORMATION
  Report Type: Spontaneous
  Country: JP (occurrence: JP)
  Receive Date: 20130128
  Receipt Date: 20130128
  Transmission Date: 20140127
  Serious: Yes (Hospitalization)
  Sender: FDA-Public Use
  Company Number: JP-PFIZER INC-2013026695

PATIENT
  Age: 42 Year
  Sex: Female

DRUGS (5)
  1. ZITHROMAC SR [Suspect]
     Indication: NASOPHARYNGITIS
     Dosage: 2 G DAILY
     Route: 048
     Dates: start: 20121228, end: 20121228
  2. SPIROPENT [Suspect]
     Dosage: UNK
     Route: 048
  3. MUCODYNE [Suspect]
     Dosage: UNK
     Route: 048
  4. ASVERIN (TIPEPIDINE HIBENZATE) [Suspect]
     Dosage: UNK
     Route: 048
  5. BRUFEN [Suspect]
     Dosage: UNK
     Route: 048

REACTIONS (2)
  - Dyspnoea [Recovered/Resolved]
  - Eyelid oedema [Unknown]
